FAERS Safety Report 5416414-7 (Version None)
Quarter: 2007Q3

REPORT INFORMATION
  Report Type: 
  Country: None (occurrence: None)
  Receive Date: 20070816
  Receipt Date: 20070523
  Transmission Date: 20080115
  Serious: No
  Sender: FDA-Public Use
  Company Number: US-KINGPHARMUSA00001-K200700639

PATIENT

DRUGS (2)
  1. BREVITAL SODIUM INJ [Suspect]
     Indication: ELECTROCONVULSIVE THERAPY
     Dosage: 40 MG, UNK
     Route: 042
     Dates: start: 20070523, end: 20070523
  2. BREVITAL SODIUM INJ [Suspect]
     Dosage: UNK, UNK
     Route: 042
     Dates: start: 20070523, end: 20070523

REACTIONS (1)
  - DRUG INEFFECTIVE [None]
